FAERS Safety Report 9549969 (Version 2)
Quarter: 2013Q4

REPORT INFORMATION
  Report Type: Spontaneous
  Country: IT (occurrence: IT)
  Receive Date: 20130924
  Receipt Date: 20131025
  Transmission Date: 20140711
  Serious: Yes (Hospitalization)
  Sender: FDA-Public Use
  Company Number: PHHY2013IT105955

PATIENT
  Sex: Male

DRUGS (5)
  1. LANSOPRAZOLE [Suspect]
     Indication: PROPHYLAXIS AGAINST GASTROINTESTINAL ULCER
     Dosage: 30 MG, QD
     Route: 048
  2. ASA [Concomitant]
     Indication: ATRIAL FIBRILLATION
  3. CANDESARTAN CILEXETIL/HYDROCHLOORTHIAZIDE [Concomitant]
  4. CARVEDILOL [Concomitant]
  5. FUROSEMIDE [Concomitant]

REACTIONS (1)
  - Epidermolysis bullosa [Recovering/Resolving]
